FAERS Safety Report 5965388-9 (Version None)
Quarter: 2008Q4

REPORT INFORMATION
  Report Type: 
  Country: None (occurrence: None)
  Receive Date: 20081125
  Receipt Date: 20081119
  Transmission Date: 20090506
  Serious: Yes (Death)
  Sender: FDA-Public Use
  Company Number: US-JNJFOC-20070805281

PATIENT
  Sex: Female
  Weight: 67.13 kg

DRUGS (1)
  1. ORTHO EVRA [Suspect]
     Indication: DRUG USE FOR UNKNOWN INDICATION
     Route: 062

REACTIONS (2)
  - CARDIAC ARREST [None]
  - PULMONARY EMBOLISM [None]
